FAERS Safety Report 21243951 (Version 1)
Quarter: 2022Q3

REPORT INFORMATION
  Report Type: Spontaneous
  Country: US (occurrence: US)
  Receive Date: 20220823
  Receipt Date: 20220823
  Transmission Date: 20221027
  Serious: Yes (Other)
  Sender: FDA-Public Use
  Company Number: US-BRISTOL-MYERS SQUIBB COMPANY-2022-093218

PATIENT
  Age: 55 Year
  Sex: Male
  Weight: 74 kg

DRUGS (1)
  1. ABRAXANE [Suspect]
     Active Substance: PACLITAXEL
     Indication: Pancreatic carcinoma
     Dosage: FREQ : NOT PROVIDED
     Route: 065
     Dates: start: 20220603, end: 202207

REACTIONS (1)
  - Device related sepsis [Unknown]

NARRATIVE: CASE EVENT DATE: 20220801
